FAERS Safety Report 15215785 (Version 1)
Quarter: 2018Q3

REPORT INFORMATION
  Report Type: Spontaneous
  Country: US (occurrence: US)
  Receive Date: 20180703
  Receipt Date: 20180703
  Transmission Date: 20181010
  Serious: Yes (Other)
  Sender: FDA-Public Use
  Company Number: None

PATIENT
  Age: 48 Year
  Sex: Female
  Weight: 58.05 kg

DRUGS (1)
  1. BUPRENORPHINE/NALOXONE [Suspect]
     Active Substance: BUPRENORPHINE\NALOXONE
     Indication: DRUG USE DISORDER
     Route: 060
     Dates: start: 20161108, end: 20180703

REACTIONS (6)
  - Visual impairment [None]
  - Headache [None]
  - Eye pain [None]
  - Rash [None]
  - Product dosage form issue [None]
  - Insurance issue [None]

NARRATIVE: CASE EVENT DATE: 20180703
